FAERS Safety Report 7078434-9 (Version None)
Quarter: 2010Q4

REPORT INFORMATION
  Report Type: 
  Country: None (occurrence: None)
  Receive Date: 20101102
  Receipt Date: 20101021
  Transmission Date: 20110411
  Serious: Yes (Hospitalization, Other)
  Sender: FDA-Public Use
  Company Number: US-JNJFOC-20091202389

PATIENT
  Sex: Female
  Weight: 77.11 kg

DRUGS (7)
  1. DURAGESIC-100 [Suspect]
     Indication: MUSCULOSKELETAL PAIN
     Dosage: 200 UG/HR (100UG/HR/2 EVERY 72 HOURS)
     Route: 062
     Dates: end: 20091101
  2. DURAGESIC-100 [Suspect]
     Dosage: 100UG+100UG  NDC#: 50458-036-05
     Route: 062
     Dates: end: 20091101
  3. DURAGESIC-100 [Suspect]
     Dosage: NDC#: 50458-094-05
     Route: 062
  4. DURAGESIC-100 [Suspect]
     Dosage: 100 UG/HR/2 EVERY 72 HOURS, NDC: 50458-094-05
     Route: 062
  5. CYMBALTA [Concomitant]
     Indication: DEPRESSION
     Route: 048
  6. AMBIEN CR [Concomitant]
     Indication: SLEEP DISORDER
     Dosage: AT BED TIME AS NECESSARY
     Route: 048
     Dates: start: 20050101
  7. OXYCODONE [Concomitant]
     Indication: BREAKTHROUGH PAIN
     Route: 048
     Dates: start: 20070101

REACTIONS (15)
  - CLAVICLE FRACTURE [None]
  - COMA [None]
  - DRUG ADMINISTERED AT INAPPROPRIATE SITE [None]
  - HEAD INJURY [None]
  - LOSS OF BLADDER SENSATION [None]
  - NERVE INJURY [None]
  - PATELLA FRACTURE [None]
  - PNEUMOTHORAX TRAUMATIC [None]
  - PRODUCT ADHESION ISSUE [None]
  - RIB FRACTURE [None]
  - ROAD TRAFFIC ACCIDENT [None]
  - SKULL FRACTURE [None]
  - SPINAL FRACTURE [None]
  - SPLENIC RUPTURE [None]
  - UPPER LIMB FRACTURE [None]
